FAERS Safety Report 4842574-2 (Version None)
Quarter: 2005Q4

REPORT INFORMATION
  Report Type: 
  Country: None (occurrence: None)
  Receive Date: 20051129
  Receipt Date: 20051118
  Transmission Date: 20060501
  Serious: Yes (Other)
  Sender: FDA-Public Use
  Company Number: 2005158815

PATIENT
  Age: 79 Year
  Sex: Female

DRUGS (9)
  1. NORVASC [Suspect]
     Dosage: 10 MG (10 MG QD-EVERYDAY)
  2. LIPITOR [Suspect]
     Indication: BLOOD CHOLESTEROL
     Dosage: 10 MG (10 MG QD EVERY DAY)
  3. ARICEPT [Suspect]
     Indication: DEMENTIA ALZHEIMER'S TYPE
     Dosage: 10 MG (10 MG QD EVERY DAY )
     Dates: start: 20050201, end: 20050101
  4. HYZAAR (HYDROCHLOROTHIADE, LOSARTAN POTASSIUM) [Concomitant]
  5. GLIPIZIDE [Concomitant]
  6. TRICOR [Concomitant]
  7. METFORMIN HCL [Concomitant]
  8. CARBAMAZEPINE [Concomitant]
  9. CITALOPRAM HYDROBROMIDE [Concomitant]

REACTIONS (4)
  - AFFECTIVE DISORDER [None]
  - CONSTIPATION [None]
  - DEMENTIA ALZHEIMER'S TYPE [None]
  - DEPRESSION [None]
